FAERS Safety Report 7708351-X (Version None)
Quarter: 2011Q3

REPORT INFORMATION
  Report Type: 
  Country: None (occurrence: None)
  Receive Date: 20110822
  Receipt Date: 20110812
  Transmission Date: 20111222
  Serious: Yes (Other)
  Sender: FDA-Public Use
  Company Number: USA/USA/11/0020699

PATIENT
  Age: 62 Year
  Sex: Male
  Weight: 77.1115 kg

DRUGS (2)
  1. LAMOTRIGINE [Suspect]
     Indication: AFFECTIVE DISORDER
     Dosage: 25 MG, 2 IN 1 D, ORAL : 25 MG, 3 IN 1 D, ORAL
     Route: 048
     Dates: start: 20110725, end: 20110730
  2. LAMOTRIGINE [Suspect]
     Indication: AFFECTIVE DISORDER
     Dosage: 25 MG, 2 IN 1 D, ORAL : 25 MG, 3 IN 1 D, ORAL
     Route: 048
     Dates: start: 20110731, end: 20110806

REACTIONS (14)
  - CLUSTER HEADACHE [None]
  - DYSKINESIA [None]
  - WEIGHT DECREASED [None]
  - DECREASED APPETITE [None]
  - RASH GENERALISED [None]
  - OROPHARYNGEAL BLISTERING [None]
  - BURNING SENSATION [None]
  - LACRIMATION INCREASED [None]
  - CONSTIPATION [None]
  - RHINORRHOEA [None]
  - NAUSEA [None]
  - TOOTHACHE [None]
  - TREMOR [None]
  - STARING [None]
